FAERS Safety Report 7949847-5 (Version None)
Quarter: 2011Q4

REPORT INFORMATION
  Report Type: 
  Country: None (occurrence: None)
  Receive Date: 20111130
  Receipt Date: 20111128
  Transmission Date: 20120403
  Serious: Yes (Other)
  Sender: FDA-Public Use
  Company Number: US-BAYER-2011-114458

PATIENT
  Sex: Female

DRUGS (1)
  1. AVELOX [Suspect]

REACTIONS (1)
  - DRUG HYPERSENSITIVITY [None]
